FAERS Safety Report 15462962 (Version 3)
Quarter: 2018Q4

REPORT INFORMATION
  Report Type: Spontaneous
  Country: US (occurrence: US)
  Receive Date: 20181004
  Receipt Date: 20181105
  Transmission Date: 20190204
  Serious: No
  Sender: FDA-Public Use
  Company Number: US-PFIZER INC-2018399295

PATIENT
  Age: 47 Year
  Sex: Female

DRUGS (1)
  1. AMLODIPINE BESILATE [Suspect]
     Active Substance: AMLODIPINE BESYLATE
     Dosage: UNK

REACTIONS (5)
  - Tremor [Unknown]
  - Drug hypersensitivity [Unknown]
  - Urticaria [Unknown]
  - Vomiting [Unknown]
  - Dry mouth [Unknown]
